FAERS Safety Report 9841299 (Version 1)
Quarter: 2013Q4

REPORT INFORMATION
  Report Type: Spontaneous
  Country: US (occurrence: None)
  Receive Date: 20131223
  Receipt Date: 20131223
  Transmission Date: 20140711
  Serious: Yes (Other)
  Sender: FDA-Public Use
  Company Number: 222191LEO

PATIENT
  Sex: Male

DRUGS (2)
  1. PICATO [Suspect]
     Indication: ACTINIC KERATOSIS
     Route: 061
     Dates: start: 20130601
  2. METFORMIN(METFORMIN) [Concomitant]

REACTIONS (4)
  - Application site burn [None]
  - Paraesthesia [None]
  - Application site vesicles [None]
  - Incorrect dose administered [None]
